FAERS Safety Report 9939145 (Version 1)
Quarter: 2014Q1

REPORT INFORMATION
  Report Type: Report from Study
  Country: US (occurrence: US)
  Receive Date: 20140303
  Receipt Date: 20140303
  Transmission Date: 20141002
  Serious: No
  Sender: FDA-Public Use
  Company Number: US-ABBVIE-13P-163-1036937-00

PATIENT
  Age: 68 Year
  Sex: Female

DRUGS (9)
  1. HUMIRA [Suspect]
     Indication: RHEUMATOID ARTHRITIS
     Dates: start: 201204
  2. XANAX [Concomitant]
     Indication: PANIC ATTACK
  3. PROZAC [Concomitant]
     Indication: DEPRESSION
     Dosage: 1 PILL DAILY (IN THE AM)
  4. EXFORGE [Concomitant]
     Indication: BLOOD PRESSURE
     Dosage: 5-320MG DAILY
  5. PROAIR [Concomitant]
     Indication: CHRONIC OBSTRUCTIVE PULMONARY DISEASE
     Dosage: DAILY
  6. ALBUTEROL [Concomitant]
     Indication: CHRONIC OBSTRUCTIVE PULMONARY DISEASE
     Dosage: DAILY
  7. FOLIC ACID [Concomitant]
     Indication: PRODUCT USED FOR UNKNOWN INDICATION
     Dosage: DAILY
  8. OXYCODONE [Concomitant]
     Indication: PAIN
  9. FLEXERIL [Concomitant]
     Indication: MUSCLE SPASMS

REACTIONS (2)
  - Influenza [Not Recovered/Not Resolved]
  - Nasopharyngitis [Not Recovered/Not Resolved]
